FAERS Safety Report 15353290 (Version 1)
Quarter: 2018Q3

REPORT INFORMATION
  Report Type: Spontaneous
  Country: US (occurrence: US)
  Receive Date: 20180905
  Receipt Date: 20180905
  Transmission Date: 20181010
  Serious: No
  Sender: FDA-Public Use
  Company Number: US-MYLANLABS-2018M1061058

PATIENT
  Sex: Female
  Weight: 55 kg

DRUGS (1)
  1. CLORAZEPATE DIPOTASSIUM TABLETS, USP [Suspect]
     Active Substance: CLORAZEPATE DIPOTASSIUM
     Indication: PRODUCT USED FOR UNKNOWN INDICATION
     Dosage: UNK
     Route: 048

REACTIONS (7)
  - Weight decreased [Not Recovered/Not Resolved]
  - Fatigue [Recovering/Resolving]
  - Paraesthesia [Recovering/Resolving]
  - Withdrawal syndrome [Unknown]
  - Therapy cessation [Unknown]
  - Vision blurred [Recovering/Resolving]
  - Tachycardia [Recovering/Resolving]
